FAERS Safety Report 15880812 (Version 1)
Quarter: 2019Q1

REPORT INFORMATION
  Report Type: Report from Study
  Country: CA (occurrence: CA)
  Receive Date: 20190128
  Receipt Date: 20190128
  Transmission Date: 20190417
  Serious: Yes (Other)
  Sender: FDA-Public Use
  Company Number: CA-JNJFOC-20190107591

PATIENT
  Sex: Female
  Weight: 88 kg

DRUGS (2)
  1. TREMFYA [Suspect]
     Active Substance: GUSELKUMAB
     Indication: PSORIASIS
     Route: 030
     Dates: start: 20180119
  2. TREMFYA [Suspect]
     Active Substance: GUSELKUMAB
     Indication: PSORIASIS
     Route: 030

REACTIONS (6)
  - Product use issue [Unknown]
  - Influenza [Unknown]
  - Nasopharyngitis [Unknown]
  - Pharyngitis streptococcal [Recovering/Resolving]
  - Lower respiratory tract infection [Recovering/Resolving]
  - Condition aggravated [Unknown]
